FAERS Safety Report 4695647-1 (Version None)
Quarter: 2005Q2

REPORT INFORMATION
  Report Type: 
  Country: None (occurrence: None)
  Receive Date: 20050617
  Receipt Date: 20050617
  Transmission Date: 20051028
  Serious: Yes (Other)
  Sender: FDA-Public Use
  Company Number: None

PATIENT
  Age: 79 Year
  Sex: Male
  Weight: 71.6 kg

DRUGS (10)
  1. TERAZOSIN [Suspect]
  2. SODIUM FLUORIDE [Concomitant]
  3. SODIUM FLUORIDE [Concomitant]
  4. ROPINIROLE [Concomitant]
  5. FINASTERIDE [Concomitant]
  6. ACETAMINOPHEN [Concomitant]
  7. CLORIMAZOLE [Concomitant]
  8. GALANTAMINE HYDROBROMIDE [Concomitant]
  9. FLUOXETINE [Concomitant]
  10. DOCUSATE SODIUM [Concomitant]

REACTIONS (1)
  - HYPOTENSION [None]
